FAERS Safety Report 12412516 (Version 2)
Quarter: 2016Q3

REPORT INFORMATION
  Report Type: Report from Study
  Country: US (occurrence: US)
  Receive Date: 20160527
  Receipt Date: 20160908
  Transmission Date: 20161109
  Serious: Yes (Other)
  Sender: FDA-Public Use
  Company Number: US-SA-2016SA097989

PATIENT
  Age: 40 Year
  Sex: Female

DRUGS (1)
  1. LEMTRADA [Suspect]
     Active Substance: ALEMTUZUMAB
     Indication: MULTIPLE SCLEROSIS
     Route: 041
     Dates: start: 20160425, end: 20160429

REACTIONS (8)
  - Contusion [Recovering/Resolving]
  - Dyspnoea [Recovering/Resolving]
  - Pulmonary oedema [Not Recovered/Not Resolved]
  - Urinary tract infection [Recovered/Resolved]
  - Fall [Unknown]
  - Vertigo [Not Recovered/Not Resolved]
  - Pain [Recovered/Resolved]
  - Lung disorder [Recovered/Resolved]

NARRATIVE: CASE EVENT DATE: 2016
